FAERS Safety Report 13360731 (Version 2)
Quarter: 2017Q3

REPORT INFORMATION
  Report Type: Report from Study
  Country: US (occurrence: US)
  Receive Date: 20170322
  Receipt Date: 20170717
  Transmission Date: 20171127
  Serious: Yes (Hospitalization)
  Sender: FDA-Public Use
  Company Number: US-VIFOR (INTERNATIONAL) INC.-VIT-2017-02687

PATIENT
  Age: 54 Year
  Sex: Female
  Weight: 79.45 kg

DRUGS (1)
  1. VELTASSA [Suspect]
     Active Substance: PATIROMER
     Indication: BLOOD POTASSIUM INCREASED
     Route: 048
     Dates: start: 20161021

REACTIONS (2)
  - Localised infection [Unknown]
  - Renal failure [Unknown]

NARRATIVE: CASE EVENT DATE: 201612
